FAERS Safety Report 18640527 (Version 1)
Quarter: 2020Q4

REPORT INFORMATION
  Report Type: Spontaneous
  Country: IT (occurrence: IT)
  Receive Date: 20201221
  Receipt Date: 20201221
  Transmission Date: 20210114
  Serious: Yes (Other)
  Sender: FDA-Public Use
  Company Number: IT-AUROBINDO-AUR-APL-2020-059710

PATIENT
  Age: 81 Year
  Sex: Male

DRUGS (3)
  1. ZOLEDRONIC ACID [Suspect]
     Active Substance: ZOLEDRONIC ACID
     Indication: PROSTATE CANCER
     Dosage: UNK
     Route: 042
  2. ALENDRONIC ACID TABLETS [Suspect]
     Active Substance: ALENDRONIC ACID
     Indication: SPINAL COMPRESSION FRACTURE
     Dosage: UNK
     Route: 065
  3. ALENDRONIC ACID TABLETS [Suspect]
     Active Substance: ALENDRONIC ACID
     Indication: OSTEOPENIA
     Dosage: UNK
     Route: 048

REACTIONS (7)
  - Osteomyelitis [Recovering/Resolving]
  - Osteonecrosis [Recovering/Resolving]
  - Osteonecrosis of jaw [Recovering/Resolving]
  - Bone abscess [Recovering/Resolving]
  - Off label use [Recovering/Resolving]
  - Pain in jaw [Recovering/Resolving]
  - Exposed bone in jaw [Recovering/Resolving]
